FAERS Safety Report 7791842-3 (Version None)
Quarter: 2011Q4

REPORT INFORMATION
  Report Type: 
  Country: None (occurrence: None)
  Receive Date: 20111003
  Receipt Date: 20110922
  Transmission Date: 20120403
  Serious: Yes (Other)
  Sender: FDA-Public Use
  Company Number: FR-BAYER-2011-064002

PATIENT
  Age: 32 Year
  Sex: Female
  Weight: 59.864 kg

DRUGS (3)
  1. MOXIFLOXACIN HCL [Concomitant]
     Indication: SINUSITIS
     Dosage: UNK
     Dates: start: 20110302, end: 20110311
  2. MIRENA [Suspect]
     Indication: CONTRACEPTION
     Dosage: UNK
     Route: 015
     Dates: start: 20090514, end: 20110722
  3. PYOSTACINE [Concomitant]
     Indication: SINUSITIS
     Dosage: UNK UNK, BID
     Route: 048
     Dates: start: 20110131, end: 20110206

REACTIONS (5)
  - HEADACHE [None]
  - VISUAL IMPAIRMENT [None]
  - EXOPHTHALMOS [None]
  - MIGRAINE WITH AURA [None]
  - EYE DISORDER [None]
